FAERS Safety Report 6688051-8 (Version None)
Quarter: 2010Q2

REPORT INFORMATION
  Report Type: 
  Country: None (occurrence: None)
  Receive Date: 20100420
  Receipt Date: 20100409
  Transmission Date: 20101027
  Serious: Yes (Hospitalization)
  Sender: FDA-Public Use
  Company Number: PHEH2010US02522

PATIENT
  Age: 76 Year
  Sex: Female

DRUGS (1)
  1. FORADIL [Suspect]

REACTIONS (1)
  - JOINT INJURY [None]
